FAERS Safety Report 5514840-9 (Version None)
Quarter: 2007Q4

REPORT INFORMATION
  Report Type: 
  Country: None (occurrence: None)
  Receive Date: 20071113
  Receipt Date: 20071031
  Transmission Date: 20080405
  Serious: Yes (Hospitalization)
  Sender: FDA-Public Use
  Company Number: US-ELI_LILLY_AND_COMPANY-US200711000117

PATIENT
  Age: 51 Year
  Sex: Male

DRUGS (7)
  1. BYETTA [Suspect]
     Dosage: 5 UG, 2/D
     Route: 058
     Dates: start: 20070601, end: 20070701
  2. BYETTA [Suspect]
     Dosage: 10 UG, 2/D
     Route: 058
     Dates: start: 20070701, end: 20071029
  3. GLIPIZIDE [Concomitant]
     Dosage: 5 MG, 2/D
  4. DIOVAN /SCH/ [Concomitant]
  5. LIPITOR [Concomitant]
  6. IBUPROFEN [Concomitant]
     Dosage: UNK, AS NEEDED
  7. AVANDAMET [Concomitant]
     Dosage: 1 D/F, UNK

REACTIONS (2)
  - PANCREATITIS [None]
  - WEIGHT INCREASED [None]
